FAERS Safety Report 17458523 (Version 4)
Quarter: 2020Q1

REPORT INFORMATION
  Report Type: Spontaneous
  Country: NL (occurrence: NL)
  Receive Date: 20200225
  Receipt Date: 20200313
  Transmission Date: 20200409
  Serious: Yes (Life-Threatening, Hospitalization, Other)
  Sender: FDA-Public Use
  Company Number: NL-SA-2020SA047899

PATIENT
  Age: 17 Year
  Sex: Male
  Weight: 52.7 kg

DRUGS (20)
  1. TACROLIMUS. [Concomitant]
     Active Substance: TACROLIMUS
     Dosage: 2 MG, BID
     Route: 048
     Dates: start: 20200127, end: 20200216
  2. CAMPATH [Suspect]
     Active Substance: ALEMTUZUMAB
     Indication: RENAL TRANSPLANT
  3. COTRIMOXAZOL [Concomitant]
     Active Substance: SULFAMETHOXAZOLE\TRIMETHOPRIM
     Dosage: 1 PIECE, QD
     Route: 065
     Dates: start: 20200204
  4. CAMPATH [Suspect]
     Active Substance: ALEMTUZUMAB
     Indication: KIDNEY TRANSPLANT REJECTION
     Dosage: 30 MG (10MG/ML, EVERY 24 HOURS FOR TWO DAYS, 30 MG (3.03/ HOUR)
     Route: 058
     Dates: start: 20200214, end: 20200216
  5. PANTOPRAZOLE [Concomitant]
     Active Substance: PANTOPRAZOLE
     Dosage: 40 UNK
     Route: 065
     Dates: start: 20200129, end: 20200216
  6. NANOGAM [Concomitant]
     Active Substance: HUMAN IMMUNOGLOBULIN G
     Dosage: 45.000MG EENMALIG
     Route: 065
     Dates: start: 20200213
  7. FUROSEMIDE. [Concomitant]
     Active Substance: FUROSEMIDE
     Dosage: 80MG
     Route: 065
     Dates: start: 20200214
  8. AMLODIPINE [Concomitant]
     Active Substance: AMLODIPINE BESYLATE
     Dosage: 2X PER DAG 5MG
     Route: 065
     Dates: start: 20200202
  9. PREDNISONE. [Concomitant]
     Active Substance: PREDNISONE
     Dosage: 500 MG, QD
     Route: 042
     Dates: start: 20200214, end: 20200214
  10. ALLOPURINOL. [Concomitant]
     Active Substance: ALLOPURINOL
     Dosage: 100 MG, QD
     Route: 048
     Dates: start: 20200214, end: 20200218
  11. ALFACALCIDOL [Concomitant]
     Active Substance: ALFACALCIDOL
     Dosage: 2 UG, QD
     Route: 048
     Dates: start: 20200205
  12. METHYLPREDNISOLON [METHYLPREDNISOLONE] [Concomitant]
     Active Substance: METHYLPREDNISOLONE
     Dosage: 500 MG, QD
     Route: 065
     Dates: start: 20200214
  13. PREDNISOLON [PREDNISOLONE] [Concomitant]
     Active Substance: PREDNISOLONE
     Dosage: 15 MG, QD
     Route: 065
     Dates: start: 20200214
  14. PROPRANOLOL [Concomitant]
     Active Substance: PROPRANOLOL HYDROCHLORIDE
     Dosage: 20 MG, QD
     Route: 065
  15. CLEMASTINE [Concomitant]
     Active Substance: CLEMASTINE
     Dosage: 2 MG, QD
     Route: 065
     Dates: start: 20200214
  16. NATRIUM BICARBONAT [Concomitant]
     Dosage: 1500 MG, Q8H
     Route: 065
     Dates: start: 20200215, end: 20200216
  17. PANTOPRAZOLE [Concomitant]
     Active Substance: PANTOPRAZOLE
     Dosage: 40 MG, QD
     Route: 048
     Dates: start: 20200126
  18. TACROLIMUS. [Concomitant]
     Active Substance: TACROLIMUS
     Dosage: UNK
     Route: 065
     Dates: start: 20200207
  19. OXAZEPAM. [Concomitant]
     Active Substance: OXAZEPAM
     Dosage: 20 MG, QD
     Dates: start: 20200207, end: 20200216
  20. DARBEPOETINE ALFA [Concomitant]
     Active Substance: DARBEPOETIN ALFA
     Dosage: 60 UG, QW
     Route: 065
     Dates: start: 20200203

REACTIONS (12)
  - Pyrexia [Unknown]
  - Respiratory failure [Recovered/Resolved]
  - Acute respiratory failure [Recovering/Resolving]
  - Pulmonary oedema [Recovered/Resolved]
  - Incorrect route of product administration [Unknown]
  - Product use in unapproved indication [Unknown]
  - Pulmonary alveolar haemorrhage [Recovering/Resolving]
  - Headache [Unknown]
  - Acute kidney injury [Unknown]
  - Respiratory distress [Unknown]
  - Headache [Unknown]
  - Pyrexia [Unknown]

NARRATIVE: CASE EVENT DATE: 20200214
